FAERS Safety Report 6895687-8 (Version None)
Quarter: 2010Q3

REPORT INFORMATION
  Report Type: 
  Country: None (occurrence: None)
  Receive Date: 20100802
  Receipt Date: 20100722
  Transmission Date: 20110219
  Serious: Yes (Other)
  Sender: FDA-Public Use
  Company Number: DK-AMGEN-US409735

PATIENT
  Sex: Female

DRUGS (5)
  1. ENBREL [Suspect]
     Indication: RHEUMATOID ARTHRITIS
     Dates: start: 20060308, end: 20100201
  2. NORETHISTERONE [Concomitant]
     Dosage: UNKNOWN
     Route: 048
  3. SIMVASTATIN [Concomitant]
  4. MAGNYL [Concomitant]
     Dosage: UNKNOWN
     Route: 048
  5. SELO-ZOK [Concomitant]
     Dosage: UNKNOWN
     Route: 048

REACTIONS (1)
  - BREAST CANCER [None]
